FAERS Safety Report 15130870 (Version 1)
Quarter: 2018Q3

REPORT INFORMATION
  Report Type: Other
  Country: CN (occurrence: CN)
  Receive Date: 20180711
  Receipt Date: 20180711
  Transmission Date: 20181010
  Serious: Yes (Hospitalization)
  Sender: FDA-Public Use
  Company Number: CN-VALIDUS PHARMACEUTICALS LLC-CN-2018VAL000837

PATIENT

DRUGS (5)
  1. TRIPTERYGIUM WILFORDII [Suspect]
     Active Substance: HERBALS
     Indication: RHEUMATOID ARTHRITIS
     Dosage: 10 MG, TID
     Route: 048
     Dates: start: 20180511, end: 20180519
  2. ROCALTROL [Suspect]
     Active Substance: CALCITRIOL
     Indication: CALCIUM METABOLISM DISORDER
     Dosage: 0.25 ?G, BID
     Route: 048
     Dates: start: 20180511, end: 20180519
  3. CELECOXIB. [Suspect]
     Active Substance: CELECOXIB
     Indication: ANALGESIC THERAPY
     Dosage: 0.2 G, BID
     Route: 048
     Dates: start: 20180511, end: 20180519
  4. VINPOCETINE [Concomitant]
     Active Substance: VINPOCETINE
     Indication: PRODUCT USED FOR UNKNOWN INDICATION
     Dosage: 30 MG, QD
     Route: 041
     Dates: start: 20180511, end: 20180519
  5. MONOSIALOTETRAHEXOSYLGANGLIOSIDE [Concomitant]
     Active Substance: GANGLIOSIDE GM1
     Indication: PRODUCT USED FOR UNKNOWN INDICATION
     Dosage: 40 MG, QD
     Route: 041
     Dates: start: 20180511, end: 20180519

REACTIONS (2)
  - Angioedema [Recovered/Resolved]
  - Urticaria [Recovered/Resolved]

NARRATIVE: CASE EVENT DATE: 20180519
